FAERS Safety Report 16480187 (Version 2)
Quarter: 2019Q3

REPORT INFORMATION
  Report Type: Spontaneous
  Country: DE (occurrence: DE)
  Receive Date: 20190626
  Receipt Date: 20190703
  Transmission Date: 20191004
  Serious: Yes (Other)
  Sender: FDA-Public Use
  Company Number: DE-ASTRAZENECA-2019SE91465

PATIENT
  Age: 75 Year
  Sex: Male

DRUGS (10)
  1. BENRALIZUMAB. [Suspect]
     Active Substance: BENRALIZUMAB
     Indication: ASTHMA
     Route: 058
  2. BERODUAL [Concomitant]
     Active Substance: FENOTEROL HYDROBROMIDE\IPRATROPIUM BROMIDE
     Dosage: AS REQUIRED
  3. VALSARTAN. [Concomitant]
     Active Substance: VALSARTAN
  4. SIMVASTATIN. [Concomitant]
     Active Substance: SIMVASTATIN
  5. SYMBICORT [Suspect]
     Active Substance: BUDESONIDE\FORMOTEROL FUMARATE DIHYDRATE
     Indication: ASTHMA
     Dosage: 320/9 MCG TWO PUFFS TWO TIMES A DAY
     Route: 055
  6. SPIRIVA [Concomitant]
     Active Substance: TIOTROPIUM BROMIDE MONOHYDRATE
  7. PREDNISOLON [Concomitant]
     Active Substance: PREDNISOLONE
     Dosage: ABOUT EVERY 2-3 WEEKS FOR 5 DAYS40.0MG AS REQUIRED
  8. AMLODIPIN [Concomitant]
     Active Substance: AMLODIPINE BESYLATE
  9. MONTELUKAST [Concomitant]
     Active Substance: MONTELUKAST SODIUM
  10. PANTOPRAZOL [Concomitant]
     Active Substance: PANTOPRAZOLE SODIUM

REACTIONS (4)
  - Hypertension [Unknown]
  - Asthma [Unknown]
  - Lymphadenopathy mediastinal [Unknown]
  - FEV1/FVC ratio decreased [Unknown]

NARRATIVE: CASE EVENT DATE: 1987
